FAERS Safety Report 21375349 (Version 1)
Quarter: 2022Q3

REPORT INFORMATION
  Report Type: Spontaneous
  Country: US (occurrence: None)
  Receive Date: 20220923
  Receipt Date: 20220923
  Transmission Date: 20221027
  Serious: No
  Sender: FDA-Public Use
  Company Number: None

PATIENT
  Age: 41 Year
  Sex: Male
  Weight: 99 kg

DRUGS (1)
  1. NIRMATRELVIR\RITONAVIR [Suspect]
     Active Substance: NIRMATRELVIR\RITONAVIR
     Indication: COVID-19
     Dates: start: 20220908, end: 20220911

REACTIONS (4)
  - Myalgia [None]
  - Diarrhoea [None]
  - Burning sensation [None]
  - Rash pruritic [None]

NARRATIVE: CASE EVENT DATE: 20220911
